FAERS Safety Report 8548678-5 (Version None)
Quarter: 2012Q3

REPORT INFORMATION
  Report Type: 
  Country: None (occurrence: None)
  Receive Date: 20120730
  Receipt Date: 20120719
  Transmission Date: 20120928
  Serious: Yes (Hospitalization)
  Sender: FDA-Public Use
  Company Number: JP-VERTEX PHARMACEUTICALS INC.-AE-2012-010797

PATIENT
  Age: 57 Year
  Sex: Female

DRUGS (15)
  1. REBETOL [Concomitant]
     Route: 048
     Dates: start: 20120605, end: 20120709
  2. AMAZOLON [Concomitant]
     Route: 048
  3. URSO 250 [Concomitant]
     Route: 048
  4. PEGINTERFERON ALFA-2B [Concomitant]
     Route: 058
     Dates: start: 20120522, end: 20120529
  5. ERISPAN [Concomitant]
     Route: 048
  6. TELAVIC (TELAPREVIR) [Suspect]
     Indication: HEPATITIS C
     Route: 048
     Dates: start: 20120522, end: 20120531
  7. REBETOL [Concomitant]
     Route: 048
     Dates: start: 20120522, end: 20120531
  8. ZONISAMIDE [Concomitant]
     Route: 048
  9. CARBIDOPA [Concomitant]
     Route: 048
  10. MAGLAX [Concomitant]
     Route: 048
  11. TELAVIC (TELAPREVIR) [Suspect]
     Route: 048
     Dates: start: 20120605
  12. REBETOL [Concomitant]
     Route: 048
     Dates: start: 20120710
  13. LEVOTHYROXINE SODIUM [Concomitant]
     Route: 048
  14. PEGINTERFERON ALFA-2B [Concomitant]
     Route: 058
     Dates: start: 20120605
  15. PRAMIPEXOLE DIHYDROCHLORIDE [Concomitant]
     Route: 048

REACTIONS (2)
  - NEUTROPHIL COUNT DECREASED [None]
  - NAUSEA [None]
